FAERS Safety Report 24339244 (Version 1)
Quarter: 2024Q3

REPORT INFORMATION
  Report Type: Spontaneous
  Country: EG (occurrence: EG)
  Receive Date: 20240919
  Receipt Date: 20240919
  Transmission Date: 20241016
  Serious: Yes (Hospitalization, Disabling, Other)
  Sender: PFIZER
  Company Number: EG-PFIZER INC-PV202400121207

PATIENT
  Age: 69 Year
  Sex: Female
  Weight: 94 kg

DRUGS (5)
  1. CARBOPLATIN [Suspect]
     Active Substance: CARBOPLATIN
     Indication: Ovarian epithelial cancer
     Dosage: IV INFUSION OF 500 MG OF DRUG STRENGTH 450 MG /45 ML, REPEATED EVERY 21 DAYS
     Route: 042
     Dates: start: 20240529, end: 20240607
  2. PACLITAXEL [Suspect]
     Active Substance: PACLITAXEL
     Indication: Ovarian epithelial cancer
     Dosage: IV INFUSION OF 120 MG OF DRUG STRENGTH 100 MG/1.6 ML, REPEATED EVERY 7 DAYS
     Route: 042
     Dates: start: 20240529, end: 20240607
  3. PACLITAXEL [Suspect]
     Active Substance: PACLITAXEL
     Indication: Ovarian epithelial cancer
     Dosage: IV INFUSION OF 120 MG OF DRUG STRENGTH 30 MG / 5 ML, REPEATED EVERY 7 DAYS
     Route: 042
     Dates: start: 20240529, end: 20240607
  4. DEXAMETHASONE [Concomitant]
     Active Substance: DEXAMETHASONE
     Indication: Ovarian epithelial cancer
     Dosage: IV INFUSION OF 8 MG, CYCLIC AS A PREMEDICATION
     Route: 042
  5. PIRAFENE [Concomitant]
     Indication: Ovarian epithelial cancer
     Dosage: IV INFUSION OF 5 MG CYCLIC, AS A PREMEDICATION
     Route: 042

REACTIONS (1)
  - Deep vein thrombosis [Recovered/Resolved]

NARRATIVE: CASE EVENT DATE: 20240607
